FAERS Safety Report 6902556-3 (Version None)
Quarter: 2010Q3

REPORT INFORMATION
  Report Type: 
  Country: None (occurrence: None)
  Receive Date: 20100803
  Receipt Date: 20080531
  Transmission Date: 20110219
  Serious: No
  Sender: FDA-Public Use
  Company Number: US-PFIZER INC-2008047209

PATIENT
  Sex: Female
  Weight: 63.2 kg

DRUGS (10)
  1. LYRICA [Suspect]
     Indication: FIBROMYALGIA
     Dates: start: 20080402, end: 20080523
  2. TOPAMAX [Concomitant]
  3. LITHIUM [Concomitant]
  4. LAMICTAL [Concomitant]
  5. SEROQUEL [Concomitant]
  6. FOSAMAX [Concomitant]
  7. VITAMIN D [Concomitant]
  8. ALLEGRA [Concomitant]
  9. PREVACID [Concomitant]
  10. ESTRADIOL [Concomitant]

REACTIONS (6)
  - HEADACHE [None]
  - LETHARGY [None]
  - NAUSEA [None]
  - OEDEMA [None]
  - PAIN [None]
  - SOMNOLENCE [None]
